FAERS Safety Report 5503233-6 (Version None)
Quarter: 2007Q4

REPORT INFORMATION
  Report Type: 
  Country: None (occurrence: None)
  Receive Date: 20071031
  Receipt Date: 20071019
  Transmission Date: 20080405
  Serious: Yes (Hospitalization, Other)
  Sender: FDA-Public Use
  Company Number: US-PFIZER INC-2006107301

PATIENT
  Sex: Female
  Weight: 78 kg

DRUGS (6)
  1. LYRICA [Suspect]
     Indication: POST HERPETIC NEURALGIA
  2. GABAPENTIN [Suspect]
     Indication: POST HERPETIC NEURALGIA
     Route: 048
  3. GABAPENTIN [Suspect]
     Route: 048
  4. ATENOLOL [Concomitant]
     Indication: HYPERTENSION
  5. ALLOPURINOL [Concomitant]
     Indication: GOUT
  6. ANALGESICS [Concomitant]

REACTIONS (32)
  - ABDOMINAL PAIN [None]
  - ALANINE AMINOTRANSFERASE INCREASED [None]
  - AREFLEXIA [None]
  - ARTHRALGIA [None]
  - ASPARTATE AMINOTRANSFERASE INCREASED [None]
  - ASTHENIA [None]
  - BLOOD BILIRUBIN INCREASED [None]
  - BLOOD CREATINE PHOSPHOKINASE INCREASED [None]
  - BLOOD CREATINE PHOSPHOKINASE MB INCREASED [None]
  - BLOOD POTASSIUM DECREASED [None]
  - BLOOD UREA INCREASED [None]
  - COGNITIVE DISORDER [None]
  - CONFUSIONAL STATE [None]
  - CONTUSION [None]
  - DEFAECATION URGENCY [None]
  - DRUG INEFFECTIVE [None]
  - DRY MOUTH [None]
  - EXCORIATION [None]
  - FALL [None]
  - HALLUCINATION [None]
  - HIP ARTHROPLASTY [None]
  - HYPOAESTHESIA [None]
  - HYPOREFLEXIA [None]
  - IRRITABILITY [None]
  - JOINT RANGE OF MOTION DECREASED [None]
  - LOSS OF CONSCIOUSNESS [None]
  - MUSCULOSKELETAL PAIN [None]
  - NEUROPATHY PERIPHERAL [None]
  - PAIN IN EXTREMITY [None]
  - RHABDOMYOLYSIS [None]
  - ROTATOR CUFF SYNDROME [None]
  - SPONDYLOLISTHESIS [None]
